FAERS Safety Report 15558552 (Version 1)
Quarter: 2018Q4

REPORT INFORMATION
  Report Type: Spontaneous
  Country: US (occurrence: US)
  Receive Date: 20181028
  Receipt Date: 20181028
  Transmission Date: 20190205
  Serious: Yes (Death, Life-Threatening, Other)
  Sender: FDA-Public Use
  Company Number: US-BAXTER-2017BAX041484

PATIENT
  Age: 69 Year
  Sex: Male

DRUGS (7)
  1. PIPERACILLIN/TAZOBACTAM [Suspect]
     Active Substance: PIPERACILLIN SODIUM\TAZOBACTAM SODIUM
     Indication: BACTERAEMIA
     Route: 065
  2. DOXYCYCLINE. [Suspect]
     Active Substance: DOXYCYCLINE
     Indication: BACTERAEMIA
     Route: 065
  3. DOXYCYCLINE. [Suspect]
     Active Substance: DOXYCYCLINE
     Indication: PULMONARY ALVEOLAR HAEMORRHAGE
  4. ERTAPENEM. [Suspect]
     Active Substance: ERTAPENEM SODIUM
     Indication: BACTERAEMIA
     Route: 051
  5. CEFAZOLIN INJECTION [Suspect]
     Active Substance: CEFAZOLIN
     Indication: BACTERAEMIA
     Route: 065
  6. VANCOMYCIN INJECTION, USP [Suspect]
     Active Substance: VANCOMYCIN
     Indication: BACTERAEMIA
     Route: 051
  7. ERTAPENEM. [Suspect]
     Active Substance: ERTAPENEM SODIUM
     Indication: PULMONARY ALVEOLAR HAEMORRHAGE

REACTIONS (2)
  - Drug resistance [Unknown]
  - Drug ineffective [Fatal]
